FAERS Safety Report 17983086 (Version 2)
Quarter: 2020Q3

REPORT INFORMATION
  Report Type: Spontaneous
  Country: US (occurrence: US)
  Receive Date: 20200706
  Receipt Date: 20200722
  Transmission Date: 20201103
  Serious: No
  Sender: FDA-Public Use
  Company Number: US-PFIZER INC-2020242045

PATIENT
  Age: 4 Year
  Sex: Female

DRUGS (2)
  1. LORBRENA [Suspect]
     Active Substance: LORLATINIB
     Dosage: UNK (DOSAGE: 25 MG)
  2. LORBRENA [Suspect]
     Active Substance: LORLATINIB
     Indication: ADRENAL GLAND CANCER
     Dosage: 75 MG

REACTIONS (4)
  - Pain [Unknown]
  - Product use issue [Unknown]
  - Product use in unapproved indication [Unknown]
  - Off label use [Unknown]
